FAERS Safety Report 6451321-2 (Version None)
Quarter: 2009Q4

REPORT INFORMATION
  Report Type: 
  Country: None (occurrence: None)
  Receive Date: 20091123
  Receipt Date: 20080929
  Transmission Date: 20100525
  Serious: Yes (Hospitalization)
  Sender: FDA-Public Use
  Company Number: EC-MERCK-0809PER00009

PATIENT
  Age: 65 Year
  Sex: Male

DRUGS (3)
  1. JANUVIA [Suspect]
     Indication: TYPE 2 DIABETES MELLITUS
     Route: 048
  2. PROSCAR [Concomitant]
     Indication: BENIGN PROSTATIC HYPERPLASIA
     Route: 065
  3. COZAAR [Concomitant]
     Indication: HYPERTENSION
     Route: 065

REACTIONS (1)
  - PANCREATITIS [None]
